FAERS Safety Report 5722295-4 (Version None)
Quarter: 2008Q2

REPORT INFORMATION
  Report Type: 
  Country: None (occurrence: None)
  Receive Date: 20080429
  Receipt Date: 20071018
  Transmission Date: 20081010
  Serious: No
  Sender: FDA-Public Use
  Company Number: US-ASTRAZENECA-2007UW24277

PATIENT
  Sex: Male

DRUGS (5)
  1. NEXIUM [Suspect]
     Indication: GASTROOESOPHAGEAL REFLUX DISEASE
     Route: 048
     Dates: start: 20071001
  2. NEXIUM [Suspect]
     Indication: ILL-DEFINED DISORDER
     Route: 048
     Dates: start: 20071001
  3. VYTORIN [Concomitant]
  4. INSULIN [Concomitant]
  5. PILL FOR DIABETES [Concomitant]

REACTIONS (2)
  - ABDOMINAL PAIN UPPER [None]
  - ILL-DEFINED DISORDER [None]
